FAERS Safety Report 5333031-8 (Version None)
Quarter: 2007Q2

REPORT INFORMATION
  Report Type: 
  Country: None (occurrence: None)
  Receive Date: 20070306
  Receipt Date: 20061031
  Transmission Date: 20071010
  Serious: Yes (Other)
  Sender: FDA-Public Use
  Company Number: A03200606546

PATIENT
  Age: 68 Year
  Sex: Male

DRUGS (5)
  1. PLAVIX [Suspect]
     Indication: STENT PLACEMENT
     Dosage: 75 MG QD - ORAL
     Route: 048
     Dates: start: 20060914
  2. METOPROLOL TARTRATE [Concomitant]
  3. VALSARTAN [Concomitant]
  4. AMLODIPINE BESYLATE [Concomitant]
  5. FUROSEMIDE [Concomitant]

REACTIONS (2)
  - BLOOD PRESSURE INCREASED [None]
  - HEADACHE [None]
